FAERS Safety Report 8286549-2 (Version None)
Quarter: 2012Q2

REPORT INFORMATION
  Report Type: 
  Country: None (occurrence: None)
  Receive Date: 20120416
  Receipt Date: 20120409
  Transmission Date: 20120825
  Serious: Yes (Hospitalization)
  Sender: FDA-Public Use
  Company Number: US-BAYER-201027941NA

PATIENT
  Age: 47 Year
  Sex: Female
  Weight: 69.545 kg

DRUGS (40)
  1. TESTOSTERONE CYPIONATE [Concomitant]
     Indication: HYPOGONADISM
     Dates: start: 20050101
  2. METRONIDAZOLE [Concomitant]
  3. HYDROCHLOROTHIAZIDE [Concomitant]
  4. HYDROCHLOROTHIAZIDE [Concomitant]
     Indication: HYPERTENSION
     Dates: start: 20060101, end: 20090101
  5. CYCLOBENZAPRINE HYDROCHLORIDE [Concomitant]
     Indication: MUSCLE RELAXANT THERAPY
     Dates: start: 20050101
  6. PREMARIN [Concomitant]
     Indication: PRODUCT USED FOR UNKNOWN INDICATION
     Dates: start: 20060101
  7. WELLBUTRIN SR [Concomitant]
     Indication: PRODUCT USED FOR UNKNOWN INDICATION
     Dosage: 1 IN THE MORNING X 7 DAYS; THEN 2 IN THE MORNING
  8. V-R BISACODYL [Concomitant]
     Dates: start: 20050101
  9. METOPROLOL TARTRATE [Concomitant]
     Indication: PRODUCT USED FOR UNKNOWN INDICATION
  10. DOXYCYCLINE [Concomitant]
     Indication: ACNE
     Dosage: 100 MG (DAILY DOSE), QD,
     Dates: start: 19990101, end: 20080101
  11. NEXIUM [Concomitant]
     Indication: PEPTIC ULCER
  12. PREVACID [Concomitant]
     Indication: PEPTIC ULCER
  13. IRON [IRON] [Concomitant]
  14. TOPAMAX [Concomitant]
  15. ATROVENT [Concomitant]
     Indication: ASTHMA
     Dosage: 0.03%
     Dates: start: 20050901, end: 20070601
  16. AMBIEN [Concomitant]
     Indication: INSOMNIA
     Dates: start: 20010101
  17. HYOSCYAMINE [Concomitant]
     Indication: GASTROINTESTINAL PAIN
     Dates: start: 20060101, end: 20080101
  18. PREVACID [Concomitant]
     Indication: GASTROOESOPHAGEAL REFLUX DISEASE
     Dosage: 30 MG (DAILY DOSE), QD,
     Dates: start: 20060101, end: 20080101
  19. PROMETHAZINE [Concomitant]
     Indication: NAUSEA
     Dosage: PRN
     Dates: start: 20050101, end: 20060101
  20. PROMETHAZINE [Concomitant]
     Indication: HEADACHE
  21. BIAXIN [Concomitant]
  22. HYOSCYAMINE [Concomitant]
  23. TRAMADOL HCL [Concomitant]
     Indication: FIBROMYALGIA
     Dosage: 3 TABLETS - 5 TIMES A DAY
     Route: 048
     Dates: start: 19970101
  24. CLONIDINE [Concomitant]
     Indication: HYPERTENSION
     Dates: start: 20050501
  25. FEXOFENADINE [Concomitant]
     Indication: MULTIPLE ALLERGIES
     Dates: start: 20060101, end: 20090101
  26. NEXIUM [Concomitant]
     Indication: GASTROOESOPHAGEAL REFLUX DISEASE
     Dosage: 40 MG (DAILY DOSE), QD,
     Dates: start: 20050101
  27. CALCIUM CITRATE [Concomitant]
  28. TORADOL [Concomitant]
     Indication: PAIN
  29. ALBUTEROL [Concomitant]
     Indication: ASTHMA
  30. PULMICORT [Concomitant]
     Indication: ASTHMA
     Dates: start: 20050501
  31. BISACODYL [Concomitant]
     Indication: CONSTIPATION
     Dates: start: 20050101
  32. SPIRONOLACTONE [Concomitant]
     Indication: PRODUCT USED FOR UNKNOWN INDICATION
     Dates: start: 20070314
  33. UNCODEABLE ^UNCLASSIFIABLE^ [Concomitant]
  34. PULMICORT [Concomitant]
  35. YASMIN [Suspect]
     Indication: ACNE
     Route: 048
     Dates: start: 20060601, end: 20060623
  36. LISINOPRIL [Concomitant]
     Indication: PRODUCT USED FOR UNKNOWN INDICATION
     Dates: start: 20060127
  37. VITAMIN D [Concomitant]
     Indication: VITAMIN D DEFICIENCY
     Dates: start: 20050101
  38. CLIMARA [Concomitant]
     Indication: MENOPAUSAL SYMPTOMS
     Route: 062
     Dates: start: 20050501, end: 20060601
  39. GLYCOLAX [Concomitant]
  40. DULCOLAX [Concomitant]

REACTIONS (5)
  - DEEP VEIN THROMBOSIS [None]
  - DYSPNOEA [None]
  - OEDEMA PERIPHERAL [None]
  - PAIN IN EXTREMITY [None]
  - CELLULITIS STAPHYLOCOCCAL [None]
